FAERS Safety Report 23729480 (Version 1)
Quarter: 2024Q2

REPORT INFORMATION
  Report Type: Spontaneous
  Country: JP (occurrence: JP)
  Receive Date: 20240410
  Receipt Date: 20240410
  Transmission Date: 20240717
  Serious: Yes (Death)
  Sender: FDA-Public Use
  Company Number: JP-002147023-NVSJ2024JP003999

PATIENT

DRUGS (1)
  1. RUXOLITINIB [Suspect]
     Active Substance: RUXOLITINIB
     Indication: Chronic graft versus host disease
     Dosage: 20 MG
     Route: 048
     Dates: start: 20230111, end: 202302

REACTIONS (1)
  - Respiratory syncytial virus infection [Fatal]

NARRATIVE: CASE EVENT DATE: 20230201
